FAERS Safety Report 17439712 (Version 1)
Quarter: 2020Q1

REPORT INFORMATION
  Report Type: Spontaneous
  Country: US (occurrence: US)
  Receive Date: 20200220
  Receipt Date: 20200220
  Transmission Date: 20200409
  Serious: No
  Sender: FDA-Public Use
  Company Number: US-MYLANLABS-2020M1015363

PATIENT
  Sex: Female
  Weight: 64 kg

DRUGS (1)
  1. ALPRAZOLAM TABLETS, USP [Suspect]
     Active Substance: ALPRAZOLAM
     Indication: ANXIETY
     Dosage: TWICE DAILY AS NEEDED

REACTIONS (2)
  - Recalled product administered [Recovered/Resolved]
  - Wrong technique in product usage process [Not Recovered/Not Resolved]
